FAERS Safety Report 24417433 (Version 2)
Quarter: 2024Q4

REPORT INFORMATION
  Report Type: Spontaneous
  Country: JP (occurrence: JP)
  Receive Date: 20241009
  Receipt Date: 20241011
  Transmission Date: 20250114
  Serious: Yes (Other)
  Sender: ELI LILLY AND CO
  Company Number: JP-ELI_LILLY_AND_COMPANY-JP202410003273

PATIENT
  Age: 74 Year
  Sex: Male

DRUGS (3)
  1. NECITUMUMAB [Suspect]
     Active Substance: NECITUMUMAB
     Indication: Lung squamous cell carcinoma recurrent
     Dosage: 800 MG, UNKNOWN
     Route: 041
     Dates: start: 20240926
  2. GEMCITABINE HYDROCHLORIDE [Suspect]
     Active Substance: GEMCITABINE HYDROCHLORIDE
     Indication: Lung squamous cell carcinoma recurrent
     Dosage: 1000 MG/M2, CYCLICAL
     Route: 041
     Dates: start: 20240926
  3. CISPLATIN [Suspect]
     Active Substance: CISPLATIN
     Indication: Lung squamous cell carcinoma recurrent
     Dosage: UNK
     Route: 042
     Dates: start: 20240926

REACTIONS (2)
  - Haematotoxicity [Not Recovered/Not Resolved]
  - Infusion related reaction [Recovered/Resolved]

NARRATIVE: CASE EVENT DATE: 20240926
